FAERS Safety Report 7953740-1 (Version None)
Quarter: 2011Q4

REPORT INFORMATION
  Report Type: 
  Country: None (occurrence: None)
  Receive Date: 20111202
  Receipt Date: 20111124
  Transmission Date: 20120403
  Serious: Yes (Hospitalization, Other)
  Sender: FDA-Public Use
  Company Number: ES-JNJFOC-20111111856

PATIENT
  Age: 70 Year
  Sex: Male

DRUGS (4)
  1. XARELTO [Suspect]
     Dosage: SELF PRESCRIBED
     Route: 048
     Dates: start: 20111001, end: 20111005
  2. XARELTO [Suspect]
     Indication: THROMBOSIS PROPHYLAXIS
     Route: 048
     Dates: start: 20110823, end: 20110925
  3. XARELTO [Suspect]
     Dosage: SELF PRESCRIBED
     Route: 048
     Dates: start: 20111001, end: 20111005
  4. XARELTO [Suspect]
     Indication: KNEE ARTHROPLASTY
     Route: 048
     Dates: start: 20110823, end: 20110925

REACTIONS (1)
  - COMPARTMENT SYNDROME [None]
